FAERS Safety Report 21813866 (Version 1)
Quarter: 2023Q1

REPORT INFORMATION
  Report Type: Spontaneous
  Country: None (occurrence: US)
  Receive Date: 20230104
  Receipt Date: 20230104
  Transmission Date: 20230417
  Serious: No
  Sender: FDA-Public Use
  Company Number: US-Ajanta Pharma USA Inc.-2136387

PATIENT
  Age: 52 Year
  Sex: Female

DRUGS (1)
  1. CHOLESTYRAMINE [Suspect]
     Active Substance: CHOLESTYRAMINE
     Indication: Exposure to fungus
     Route: 048
     Dates: start: 202203, end: 202205

REACTIONS (6)
  - Off label use [Recovered/Resolved]
  - Foreign body in mouth [Recovered/Resolved]
  - Product physical consistency issue [Recovered/Resolved]
  - Tooth discolouration [Recovering/Resolving]
  - Intentional product misuse [Recovered/Resolved]
  - Therapeutic response unexpected [Recovered/Resolved]

NARRATIVE: CASE EVENT DATE: 20220301
